FAERS Safety Report 8515650-0 (Version None)
Quarter: 2012Q3

REPORT INFORMATION
  Report Type: 
  Country: None (occurrence: None)
  Receive Date: 20120717
  Receipt Date: 20120711
  Transmission Date: 20120928
  Serious: Yes (Other)
  Sender: FDA-Public Use
  Company Number: PHHY2010US78294

PATIENT
  Sex: Female

DRUGS (1)
  1. DIOVAN HCT [Suspect]
     Indication: HYPERTENSION
     Dosage: 1 DF (320 MG OF VAL/ 12.5 MG HCT), QD
     Route: 048
     Dates: start: 20100801

REACTIONS (6)
  - EYE DISORDER [None]
  - OEDEMA PERIPHERAL [None]
  - JOINT SWELLING [None]
  - FALL [None]
  - LOWER LIMB FRACTURE [None]
  - LIP INJURY [None]
